FAERS Safety Report 19364362 (Version 2)
Quarter: 2021Q2

REPORT INFORMATION
  Report Type: Other
  Country: CN (occurrence: CN)
  Receive Date: 20210603
  Receipt Date: 20210604
  Transmission Date: 20210717
  Serious: Yes (Other)
  Sender: FDA-Public Use
  Company Number: CN-ROCHE-2840696

PATIENT
  Age: 48 Year
  Sex: Male

DRUGS (3)
  1. CLOPIDOGREL [Concomitant]
     Active Substance: CLOPIDOGREL BISULFATE
     Indication: DRUG THERAPY
     Route: 048
  2. ATORVASTATIN [Concomitant]
     Active Substance: ATORVASTATIN
     Indication: LIPIDS ABNORMAL
     Dosage: QN
     Route: 048
  3. ACTILYSE [Suspect]
     Active Substance: ALTEPLASE
     Indication: THROMBOLYSIS
     Route: 042

REACTIONS (3)
  - Medication error [Unknown]
  - Seizure [Recovered/Resolved]
  - Postictal paralysis [Unknown]
